FAERS Safety Report 11046044 (Version 2)
Quarter: 2015Q2

REPORT INFORMATION
  Report Type: Spontaneous
  Country: US (occurrence: US)
  Receive Date: 20150418
  Receipt Date: 20150526
  Transmission Date: 20150821
  Serious: No
  Sender: FDA-Public Use
  Company Number: US-JNJFOC-20121101190

PATIENT
  Age: 28 Year
  Sex: Female

DRUGS (1)
  1. HALOPERIDOL DECANOATE. [Suspect]
     Active Substance: HALOPERIDOL DECANOATE
     Indication: ACCIDENTAL EXPOSURE TO PRODUCT
     Route: 030
     Dates: start: 2012

REACTIONS (2)
  - Product quality issue [Unknown]
  - Injury [Recovered/Resolved]

NARRATIVE: CASE EVENT DATE: 20121029
